FAERS Safety Report 17698285 (Version 1)
Quarter: 2020Q2

REPORT INFORMATION
  Report Type: Spontaneous
  Country: US (occurrence: US)
  Receive Date: 20200423
  Receipt Date: 20200423
  Transmission Date: 20200714
  Serious: No
  Sender: FDA-Public Use
  Company Number: US-PFIZER INC-2020158653

PATIENT
  Age: 48 Year
  Sex: Female

DRUGS (2)
  1. XELJANZ [Suspect]
     Active Substance: TOFACITINIB CITRATE
     Dosage: 5 MG, UNK
     Dates: start: 20151204
  2. XELJANZ [Suspect]
     Active Substance: TOFACITINIB CITRATE
     Dosage: 5 MG, UNK
     Dates: start: 20151208

REACTIONS (9)
  - Asthenia [Unknown]
  - Discomfort [Unknown]
  - Depression [Unknown]
  - Sensitivity to weather change [Unknown]
  - Product dose omission [Unknown]
  - Arthralgia [Unknown]
  - Pain [Unknown]
  - Poor quality sleep [Unknown]
  - Memory impairment [Unknown]
